FAERS Safety Report 10880635 (Version 2)
Quarter: 2021Q3

REPORT INFORMATION
  Report Type: Spontaneous
  Country: DE (occurrence: DE)
  Receive Date: 20150303
  Receipt Date: 20210820
  Transmission Date: 20211014
  Serious: Yes (Congenital Anomaly, Other)
  Sender: FDA-Public Use
  Company Number: DE-AUROBINDO-AUR-APL-2015-01650

PATIENT
  Age: 1 Day
  Sex: Female
  Weight: 2.8 kg

DRUGS (5)
  1. SETRALINE 100MG [Suspect]
     Active Substance: SERTRALINE HYDROCHLORIDE
     Indication: DEPRESSION
     Dosage: 100 MILLIGRAM, ONCE A DAY
     Route: 064
     Dates: start: 20131207, end: 20140206
  2. QUETIAPINE 100MG [Suspect]
     Active Substance: QUETIAPINE
     Indication: ANXIETY DISORDER
     Dosage: 100 MILLIGRAM, ONCE A DAY
     Route: 064
     Dates: start: 20131207, end: 20140206
  3. QUETIAPINE 100MG [Suspect]
     Active Substance: QUETIAPINE
     Indication: DEPRESSION
  4. FOLSAEURE [Concomitant]
     Active Substance: FOLIC ACID
     Indication: PROPHYLAXIS OF NEURAL TUBE DEFECT
     Dosage: UNK
     Route: 064
  5. VOMEX A [Concomitant]
     Active Substance: DIMENHYDRINATE
     Indication: MORNING SICKNESS
     Dosage: UNK
     Route: 064

REACTIONS (2)
  - Teratoma benign [Recovered/Resolved with Sequelae]
  - Foetal exposure during pregnancy [Recovered/Resolved]

NARRATIVE: CASE EVENT DATE: 20131207
